FAERS Safety Report 9900359 (Version 1)
Quarter: 2014Q1

REPORT INFORMATION
  Report Type: Spontaneous
  Country: JP (occurrence: JP)
  Receive Date: 20140216
  Receipt Date: 20140216
  Transmission Date: 20141002
  Serious: Yes (Other)
  Sender: FDA-Public Use
  Company Number: JP-PFIZER INC-2014043926

PATIENT
  Sex: Male

DRUGS (5)
  1. CELECOX [Suspect]
     Indication: MUSCULOSKELETAL STIFFNESS
     Dosage: 200 MG, UID/QD
     Route: 048
  2. GASMOTIN [Concomitant]
     Indication: ABDOMINAL DISCOMFORT
     Dosage: 1 TABLET, 3X/DAY
     Route: 048
  3. INSULIN [Concomitant]
     Indication: DIABETES MELLITUS
  4. FAMOTIDINE [Concomitant]
     Indication: ABDOMINAL PAIN UPPER
     Dosage: PRN BASIS
     Route: 048
  5. ACINON [Concomitant]
     Indication: MUSCULOSKELETAL STIFFNESS
     Dosage: 2 DF

REACTIONS (2)
  - Blood glucose increased [Recovered/Resolved]
  - Hiccups [Recovered/Resolved]
